FAERS Safety Report 9538740 (Version 4)
Quarter: 2014Q2

REPORT INFORMATION
  Report Type: Report from Study
  Country: US (occurrence: US)
  Receive Date: 20130920
  Receipt Date: 20140415
  Transmission Date: 20141212
  Serious: Yes (Other)
  Sender: FDA-Public Use
  Company Number: PHEH2013US017829

PATIENT
  Sex: Female
  Weight: 73.47 kg

DRUGS (4)
  1. GILENYA [Suspect]
     Indication: MULTIPLE SCLEROSIS
     Dosage: 0.5 MG, QD
     Route: 048
     Dates: start: 20130708
  2. CYMBALTA [Concomitant]
     Dosage: 60 MG, DAILY
     Route: 048
  3. AMANTADINE [Concomitant]
     Dosage: 100 MG, PRN
  4. XANAX [Concomitant]
     Dosage: 0.5 MG, PRN

REACTIONS (7)
  - Central nervous system lesion [Unknown]
  - Nausea [Recovering/Resolving]
  - Memory impairment [Unknown]
  - Facial pain [Not Recovered/Not Resolved]
  - Cognitive disorder [Not Recovered/Not Resolved]
  - Trigeminal neuralgia [Unknown]
  - Dizziness [Recovering/Resolving]
